FAERS Safety Report 11926194 (Version 1)
Quarter: 2016Q1

REPORT INFORMATION
  Report Type: Spontaneous
  Country: JP (occurrence: JP)
  Receive Date: 20160119
  Receipt Date: 20160119
  Transmission Date: 20160526
  Serious: Yes (Other)
  Sender: FDA-Public Use
  Company Number: JP-SUN PHARMACEUTICAL INDUSTRIES LTD-2015RR-109321

PATIENT

DRUGS (3)
  1. GLIMEPIRIDE. [Suspect]
     Active Substance: GLIMEPIRIDE
     Indication: ACCIDENTAL EXPOSURE TO PRODUCT
     Dosage: 3 MG, DAILY
     Route: 065
  2. OCTREOTIDE. [Suspect]
     Active Substance: OCTREOTIDE
     Indication: HYPOGLYCAEMIA
     Dosage: 75 ?G, UNK
     Route: 058
  3. VILDAGLIPTIN [Suspect]
     Active Substance: VILDAGLIPTIN
     Indication: TYPE 2 DIABETES MELLITUS
     Dosage: 50 MG, BID
     Route: 065

REACTIONS (4)
  - Hypoglycaemic coma [Recovering/Resolving]
  - Hypoglycaemia [Recovering/Resolving]
  - Accidental exposure to product [Unknown]
  - Off label use [Unknown]
